FAERS Safety Report 11692837 (Version 1)
Quarter: 2015Q4

REPORT INFORMATION
  Report Type: Report from Study
  Country: NL (occurrence: NL)
  Receive Date: 20151103
  Receipt Date: 20151103
  Transmission Date: 20160304
  Serious: Yes (Hospitalization)
  Sender: FDA-Public Use
  Company Number: NL-ROCHE-1652157

PATIENT
  Age: 68 Year

DRUGS (7)
  1. PACLITAXEL. [Suspect]
     Active Substance: PACLITAXEL
     Indication: HER-2 POSITIVE BREAST CANCER
     Dosage: MOST RECENT TRATMENT ADMINISTRATION ON 05/OCT/2015 AND ON 12/10/2015.
     Route: 042
     Dates: start: 20150601
  2. PIPERACILLIN/TAZOBACTAM [Concomitant]
     Active Substance: PIPERACILLIN SODIUM\TAZOBACTAM SODIUM
     Dosage: 4000/500 MG 3DD
     Route: 065
     Dates: start: 20151022, end: 20151026
  3. TRASTUZUMAB [Suspect]
     Active Substance: TRASTUZUMAB
     Indication: HER-2 POSITIVE BREAST CANCER
     Dosage: MOST RECENT TRATMENT ADMINISTRATION ON 05/OCT/2015; D1-(D8-D15)
     Route: 042
     Dates: start: 20150601
  4. CARBOPLATIN. [Suspect]
     Active Substance: CARBOPLATIN
     Indication: HER-2 POSITIVE BREAST CANCER
     Dosage: MOST RECENT TRATMENT ADMINISTRATION ON 05/OCT/2015 AND ON 12/10/2015.
     Route: 042
     Dates: start: 20150601
  5. PERTUZUMAB [Suspect]
     Active Substance: PERTUZUMAB
     Indication: HER-2 POSITIVE BREAST CANCER
     Dosage: MOST RECENT TRATMENT ADMINISTRATION ON 05/OCT/2015
     Route: 042
     Dates: start: 20150601
  6. AUGMENTIN [Concomitant]
     Active Substance: AMOXICILLIN\CLAVULANATE POTASSIUM
     Dosage: 1200 MG 2 DD
     Route: 065
     Dates: start: 20151020, end: 20151021
  7. AUGMENTIN [Concomitant]
     Active Substance: AMOXICILLIN\CLAVULANATE POTASSIUM
     Dosage: 1200 MG 4 DD
     Route: 065
     Dates: start: 20151019, end: 20151020

REACTIONS (1)
  - Cholecystitis [Recovered/Resolved]

NARRATIVE: CASE EVENT DATE: 20151019
